FAERS Safety Report 23459033 (Version 1)
Quarter: 2024Q1

REPORT INFORMATION
  Report Type: Report from Study
  Country: US (occurrence: US)
  Receive Date: 20240131
  Receipt Date: 20240131
  Transmission Date: 20240410
  Serious: Yes (Hospitalization, Other)
  Sender: FDA-Public Use
  Company Number: US-ABBVIE-5608187

PATIENT
  Age: 19 Year
  Sex: Female
  Weight: 81 kg

DRUGS (20)
  1. VENCLEXTA [Suspect]
     Active Substance: VENETOCLAX
     Indication: Acute myeloid leukaemia (in remission)
     Dosage: 50 MG DAY 1 REINDUCTION 7+3+ VENETOCLAX DAY ONE TO SEVEN
     Route: 048
     Dates: start: 20230510
  2. TUMS KIDS [Concomitant]
     Indication: Product used for unknown indication
     Dosage: 200 MG, 500 MG TAKE AS NEEDED.
  3. VIDAZA [Concomitant]
     Active Substance: AZACITIDINE
     Indication: Product used for unknown indication
     Dosage: 40MG/M2 , CYCLE 2 DAY 1, CYCLE 3 DAY 1
     Dates: start: 20231127
  4. BUDESONIDE [Concomitant]
     Active Substance: BUDESONIDE
     Indication: Graft versus host disease
     Dates: end: 20240104
  5. VITAMIN D2 [Concomitant]
     Active Substance: ERGOCALCIFEROL
     Indication: Product used for unknown indication
     Dosage: 1250 MCG (50,000 UNIT) CAPSULE TAKE 1 CAPSULE ORALLY MONDAY/WEDNESDAY AND FRIDAY.
  6. BENADRYL [Concomitant]
     Active Substance: DIPHENHYDRAMINE HYDROCHLORIDE
     Indication: Product used for unknown indication
     Dates: start: 20230712
  7. VITAMIN B12 [Concomitant]
     Active Substance: CYANOCOBALAMIN
     Indication: Product used for unknown indication
     Dosage: 2,000 MCG TABLET, EXTENDED RELEASE TAKE ONE TABLET BY MOUTH EVERY OTHER DAY.?FORM STRENGTH: 2000 ...
  8. PANTOPRAZOLE [Concomitant]
     Active Substance: PANTOPRAZOLE
     Indication: Gastrooesophageal reflux disease
     Dosage: TAKE ONE TABLET BY MOUTH EVERY 12 HOURS. FOR GERD.?FORM STRENGTH: 40MG
  9. FOLIC ACID [Concomitant]
     Active Substance: FOLIC ACID
     Indication: Product used for unknown indication
     Dosage: TAKE ONE TABLET BY MOUTH DAILY.?FORM STRENGTH: 1MG
  10. ONDANSETRON HYDROCHLORIDE [Concomitant]
     Active Substance: ONDANSETRON HYDROCHLORIDE
     Indication: Nausea
     Dosage: TAKE ONE TABLET BY MOUTH EVERY 8 HOURS AS NEEDED FOR NAUSEA?FORM STRENGTH: 8MG
  11. POSACONAZOLE [Concomitant]
     Active Substance: POSACONAZOLE
     Indication: Antifungal treatment
     Dosage: TAKE 3 TABLETS BY MOUTH DAILY WITH FOOD. ANTIFUNGAL. START AM OF 7/28/23.?FORM STRENGTH: 100 MG
  12. BACTRIM DS [Concomitant]
     Active Substance: SULFAMETHOXAZOLE\TRIMETHOPRIM
     Indication: Infection prophylaxis
     Dosage: TAKE ONE TABLET BY MOUTH EVERY MONDAY/WEDNESDAY AND FRIDAY FOR PNEUMONIA  PREVENTATIVE?FREQUENCY ...
  13. IMITREX [Concomitant]
     Active Substance: SUMATRIPTAN SUCCINATE
     Indication: Migraine
     Dosage: TAKE ONE TABLET BY MOUTH AS NEEDED FOR MIGRAINES. MAY REPEAT DOSE X1 AFTER 2 HOUR .FORM STRENGTH:...
  14. MG PLUS PROTEIN [Concomitant]
     Indication: Product used for unknown indication
     Dosage: AS OF 14 JAN 2024: TAKE 1 TABLET 2 TIMES A DAY?FORM STRENGTH: 133 MG
  15. REFRESH TEARS [Concomitant]
     Active Substance: CARBOXYMETHYLCELLULOSE SODIUM
     Indication: Product used for unknown indication
     Dosage: 2 GTTS OU EVERY 4-6 OURS AS NEEDED FOR DRY EYES?FORM STRENGTH: 0.5 PERCENT
  16. TRIAMCINOLONE ACETONIDE [Concomitant]
     Active Substance: TRIAMCINOLONE ACETONIDE
     Indication: Rash
     Dosage: APPLY TO RASH (AVOID FACE,NECK,GROIN AND AXILLA) EVERY 8 HOURS.?FORM STRENGTH: 0.1 PERCENT
  17. LORAZEPAM [Concomitant]
     Active Substance: LORAZEPAM
     Indication: Anxiety
     Dosage: TAKE ONE TABLET BY MOUTH EVERY 8 HOURS PRN ANXIETY AND/OR NAUSEA/VOMITING?FORM STRENGTH: 0.5 MG
  18. TRAMADOL [Concomitant]
     Active Substance: TRAMADOL\TRAMADOL HYDROCHLORIDE
     Indication: Pain
     Dosage: TAKE ONE TO TWO TABLETS BY MOUTH EVERY 4-6 HOURS AS NEEDED FOR PAIN.?FORM STRENGTH: 50 MG
  19. ACYCLOVIR [Concomitant]
     Active Substance: ACYCLOVIR
     Indication: Product used for unknown indication
     Dosage: TAKE ONE TABLET BY MOUTH EVERY 12 HOURS.?FORM STRENGTH : 800 MG
     Route: 048
  20. TYLENOL [Concomitant]
     Active Substance: ACETAMINOPHEN
     Indication: Product used for unknown indication
     Dates: start: 20230712

REACTIONS (23)
  - Escherichia test positive [Unknown]
  - Febrile neutropenia [Unknown]
  - Folate deficiency [Unknown]
  - Vitamin B12 deficiency [Unknown]
  - Vitamin D deficiency [Unknown]
  - Off label use [Unknown]
  - Gastrooesophageal reflux disease [Unknown]
  - Rash pruritic [Unknown]
  - Cough [Not Recovered/Not Resolved]
  - Pyrexia [Unknown]
  - Pruritus [Unknown]
  - Eye pruritus [Unknown]
  - Neuropathy peripheral [Unknown]
  - Urinary tract infection enterococcal [Unknown]
  - Nausea [Unknown]
  - Hypokalaemia [Unknown]
  - Oropharyngeal pain [Unknown]
  - Thrombocytopenia [Unknown]
  - Insomnia [Unknown]
  - Hypomagnesaemia [Unknown]
  - Anaemia [Unknown]
  - Dry eye [Unknown]
  - Headache [Unknown]

NARRATIVE: CASE EVENT DATE: 20230707
